FAERS Safety Report 11837066 (Version 3)
Quarter: 2016Q2

REPORT INFORMATION
  Report Type: Spontaneous
  Country: BR (occurrence: BR)
  Receive Date: 20151215
  Receipt Date: 20160404
  Transmission Date: 20160815
  Serious: Yes (Other)
  Sender: FDA-Public Use
  Company Number: BR-JNJFOC-20151208013

PATIENT
  Age: 42 Year
  Sex: Female

DRUGS (1)
  1. SIMPONI [Suspect]
     Active Substance: GOLIMUMAB
     Indication: RHEUMATOID ARTHRITIS
     Route: 058
     Dates: start: 2013

REACTIONS (3)
  - Influenza [Unknown]
  - Device malfunction [Unknown]
  - Drug dose omission [Unknown]

NARRATIVE: CASE EVENT DATE: 2015
